FAERS Safety Report 23499398 (Version 6)
Quarter: 2024Q2

REPORT INFORMATION
  Report Type: Spontaneous
  Country: UY (occurrence: None)
  Receive Date: 20240208
  Receipt Date: 20240502
  Transmission Date: 20240716
  Serious: Yes (Other)
  Sender: FDA-Public Use
  Company Number: UY-ROCHE-3503961

PATIENT
  Age: 73 Year
  Sex: Male

DRUGS (17)
  1. MABTHERA [Suspect]
     Active Substance: RITUXIMAB
     Indication: Lymphoma transformation
     Dosage: FREQUENCY WAS NOT REPORTED, 7 CYCLES, MAINTENANCE DOSE
     Route: 041
  2. MABTHERA [Suspect]
     Active Substance: RITUXIMAB
     Route: 041
     Dates: start: 20201125
  3. MABTHERA [Suspect]
     Active Substance: RITUXIMAB
     Indication: Lymphoma transformation
     Dosage: FREQUENCY WAS NOT REPORTED. TOTAL OF CYCLES RECEIVED BY TIME OF EVENT ONSET: 6
     Route: 058
     Dates: start: 20201125, end: 20210315
  4. CYCLOPHOSPHAMIDE [Suspect]
     Active Substance: CYCLOPHOSPHAMIDE
     Indication: Lymphoma transformation
     Route: 065
     Dates: start: 20201030, end: 20210315
  5. CYCLOPHOSPHAMIDE [Suspect]
     Active Substance: CYCLOPHOSPHAMIDE
     Dosage: TOTAL OF CYCLES RECEIVED BY TIME OF EVENT ONSET: 6
     Route: 042
     Dates: start: 20201125, end: 20210315
  6. ADRIAMYCIN [Suspect]
     Active Substance: DOXORUBICIN HYDROCHLORIDE
     Indication: Lymphoma transformation
     Route: 065
     Dates: start: 20201030, end: 20210315
  7. ADRIAMYCIN [Suspect]
     Active Substance: DOXORUBICIN HYDROCHLORIDE
     Dosage: TOTAL OF CYCLES RECEIVED BY TIME OF EVENT ONSET: 6
     Route: 042
     Dates: start: 20201125, end: 20210315
  8. VINCRISTINE [Suspect]
     Active Substance: VINCRISTINE
     Indication: Lymphoma transformation
     Route: 065
     Dates: start: 20201030, end: 20210315
  9. VINCRISTINE [Suspect]
     Active Substance: VINCRISTINE
     Dosage: TOTAL OF CYCLES RECEIVED BY TIME OF EVENT ONSET: 6
     Route: 042
     Dates: start: 20201125, end: 20210315
  10. PREDNISONE [Suspect]
     Active Substance: PREDNISONE
     Indication: Lymphoma transformation
     Route: 065
     Dates: start: 20201030, end: 20210315
  11. PREDNISONE [Suspect]
     Active Substance: PREDNISONE
     Dosage: TOTAL OF CYCLES RECEIVED BY TIME OF EVENT ONSET: 6
     Route: 048
     Dates: start: 20201125, end: 20210315
  12. PREDNISONE [Suspect]
     Active Substance: PREDNISONE
     Dosage: TOTAL OF CYCLES RECEIVED BY TIME OF EVENT ONSET: 6
     Route: 048
     Dates: start: 20201125, end: 20210315
  13. IFOSFAMIDE [Suspect]
     Active Substance: IFOSFAMIDE
     Indication: Lymphoma transformation
     Route: 065
     Dates: start: 20230802, end: 20231005
  14. CARBOPLATIN [Suspect]
     Active Substance: CARBOPLATIN
     Indication: Lymphoma transformation
     Route: 065
     Dates: start: 20230802, end: 20231005
  15. ETOPOSIDE [Suspect]
     Active Substance: ETOPOSIDE
     Indication: Lymphoma transformation
     Route: 065
     Dates: start: 20230802, end: 20231005
  16. GEMCITABINE [Suspect]
     Active Substance: GEMCITABINE
     Indication: Lymphoma transformation
     Route: 065
     Dates: start: 20231127, end: 20231227
  17. OXALIPLATIN [Suspect]
     Active Substance: OXALIPLATIN
     Indication: Lymphoma transformation
     Route: 065
     Dates: start: 20231127, end: 20231227

REACTIONS (17)
  - Neoplasm progression [Recovered/Resolved]
  - Diffuse large B-cell lymphoma recurrent [Recovered/Resolved]
  - Skin mass [Recovered/Resolved]
  - Lymphadenopathy [Recovered/Resolved]
  - Activated partial thromboplastin time prolonged [Recovered/Resolved]
  - Blood fibrinogen increased [Unknown]
  - Red blood cell count decreased [Unknown]
  - Haemoglobin decreased [Unknown]
  - Monocyte count increased [Unknown]
  - Lymphocyte count decreased [Unknown]
  - Haematocrit decreased [Unknown]
  - Gamma-glutamyltransferase increased [Unknown]
  - Blood glucose increased [Unknown]
  - Blood creatinine increased [Unknown]
  - Mean cell volume increased [Unknown]
  - Platelet count decreased [Unknown]
  - Neutrophil count decreased [Unknown]

NARRATIVE: CASE EVENT DATE: 20230701
